FAERS Safety Report 14107675 (Version 1)
Quarter: 2017Q4

REPORT INFORMATION
  Report Type: Spontaneous
  Country: JP (occurrence: JP)
  Receive Date: 20171019
  Receipt Date: 20171019
  Transmission Date: 20180321
  Serious: Yes (Hospitalization)
  Sender: FDA-Public Use
  Company Number: JP-ELI_LILLY_AND_COMPANY-JP201710005550

PATIENT
  Age: 75 Year
  Sex: Male

DRUGS (3)
  1. ALIMTA [Suspect]
     Active Substance: PEMETREXED DISODIUM
     Indication: NON-SMALL CELL LUNG CANCER
     Dosage: 500 MG/M2, CYCLICAL
     Route: 042
  2. CELLSEPT [Concomitant]
     Active Substance: MYCOPHENOLATE MOFETIL
     Indication: HEPATIC FUNCTION ABNORMAL
  3. CARBOPLATIN. [Concomitant]
     Active Substance: CARBOPLATIN
     Indication: NON-SMALL CELL LUNG CANCER
     Route: 042

REACTIONS (1)
  - Gastrointestinal perforation [Not Recovered/Not Resolved]

NARRATIVE: CASE EVENT DATE: 201709
